FAERS Safety Report 22151461 (Version 2)
Quarter: 2023Q1

REPORT INFORMATION
  Report Type: Report from Study
  Country: TH (occurrence: None)
  Receive Date: 20230329
  Receipt Date: 20230331
  Transmission Date: 20230417
  Serious: Yes (Death, Hospitalization)
  Sender: FDA-Public Use
  Company Number: TH-Eisai Medical Research-EC-2023-136882

PATIENT
  Age: 67 Year
  Sex: Female

DRUGS (1)
  1. HALAVEN [Suspect]
     Active Substance: ERIBULIN MESYLATE
     Indication: Breast cancer metastatic
     Route: 041
     Dates: start: 20230220, end: 20230309

REACTIONS (6)
  - Vomiting [Unknown]
  - Death [Fatal]
  - Rash [Unknown]
  - Sputum increased [Unknown]
  - Dysphagia [Unknown]
  - Dyspnoea [Unknown]

NARRATIVE: CASE EVENT DATE: 20230220
